FAERS Safety Report 24249351 (Version 1)
Quarter: 2024Q3

REPORT INFORMATION
  Report Type: Spontaneous
  Country: US (occurrence: US)
  Receive Date: 20240826
  Receipt Date: 20240826
  Transmission Date: 20241017
  Serious: No
  Sender: ROCHE
  Company Number: US-ROCHE-3572306

PATIENT
  Age: 56 Year
  Sex: Male

DRUGS (1)
  1. NUTROPIN AQ [Suspect]
     Active Substance: SOMATROPIN
     Indication: Adrenal insufficiency
     Dosage: NUTROPIN AQ NUSPIN 5MG/2ML
     Route: 058

REACTIONS (3)
  - Off label use [Unknown]
  - Product dose omission issue [Unknown]
  - No adverse event [Unknown]
